FAERS Safety Report 5305451-9 (Version None)
Quarter: 2007Q2

REPORT INFORMATION
  Report Type: 
  Country: None (occurrence: None)
  Receive Date: 20070416
  Receipt Date: 20070330
  Transmission Date: 20071010
  Serious: Yes (Hospitalization)
  Sender: FDA-Public Use
  Company Number: US-CVT-070079

PATIENT
  Age: 85 Year
  Sex: Male

DRUGS (11)
  1. RANEXA [Suspect]
     Indication: ANGINA PECTORIS
     Dosage: 500 MG, BID
     Dates: start: 20070301
  2. COREG [Concomitant]
  3. AMLODIPIN /00972401/ (AMLODIPINE) [Concomitant]
  4. LIPITOR /01326101/ (ATORVASTATIN) [Concomitant]
  5. POTASSIUM /00031401/ (POTASSIUM) [Concomitant]
  6. METFORMIN /00082701/ (METFORMIN) [Concomitant]
  7. NITROSTAT [Concomitant]
  8. LISINOPRIL/00894001/ (LISINOPRIL) [Concomitant]
  9. NITROGLYCERIN [Concomitant]
  10. LASIX [Concomitant]
  11. MICRONASE [Concomitant]

REACTIONS (3)
  - DIABETIC GASTROPARESIS [None]
  - DYSPNOEA [None]
  - VOMITING [None]
